FAERS Safety Report 16569359 (Version 2)
Quarter: 2019Q3

REPORT INFORMATION
  Report Type: Report from Study
  Country: US (occurrence: US)
  Receive Date: 20190715
  Receipt Date: 20190812
  Transmission Date: 20191004
  Serious: Yes (Death)
  Sender: FDA-Public Use
  Company Number: US-BEH-2019104278

PATIENT

DRUGS (2)
  1. BERIPLEX P/N [Suspect]
     Active Substance: COAGULATION FACTOR IX HUMAN\COAGULATION FACTOR VII HUMAN\COAGULATION FACTOR X HUMAN\PROTEIN C\PROTEIN S HUMAN\PROTHROMBIN
     Indication: PROCOAGULANT THERAPY
     Dosage: 20 INTERNATIONAL UNIT/KILOGRAM
     Route: 065
  2. BERIPLEX P/N [Suspect]
     Active Substance: COAGULATION FACTOR IX HUMAN\COAGULATION FACTOR VII HUMAN\COAGULATION FACTOR X HUMAN\PROTEIN C\PROTEIN S HUMAN\PROTHROMBIN
     Indication: PROCOAGULANT THERAPY
     Dosage: 20 INTERNATIONAL UNIT/KILOGRAM
     Route: 065

REACTIONS (2)
  - Drug ineffective [Fatal]
  - Underdose [Fatal]
